FAERS Safety Report 9156454 (Version 2)
Quarter: 2013Q4

REPORT INFORMATION
  Report Type: Spontaneous
  Country: GB (occurrence: None)
  Receive Date: 20130204
  Receipt Date: 20131007
  Transmission Date: 20140711
  Serious: Yes (Disabling)
  Sender: FDA-Public Use
  Company Number: DSA_62118_2013

PATIENT
  Age: 42 Year
  Sex: Male

DRUGS (9)
  1. METRONIDAZOLE [Suspect]
     Indication: PILONIDAL CYST
     Dosage: 400 MG, 3 IN 1 D, ORAL
     Route: 048
     Dates: start: 20130108, end: 20130109
  2. CIPROFLOXACIN [Suspect]
     Indication: PILONIDAL CYST
     Route: 048
     Dates: start: 20130108, end: 20130108
  3. ERYTHROMYCIN (ERYTHROMYCIN) (ERYTHROMYCIN) [Concomitant]
  4. CO-CODAMOL (PANADEINE CO) (CODEINE PHOSPHATE, PARACETAMOL)? [Concomitant]
  5. MORPHINE SULFATE (MORPHINE SULFATE) (MORPHINE SULFATE) ? [Concomitant]
  6. TRAMADOL (TRAMADOL HYDROCHLORIDE) (TRAMADOL HYDROCHLORIDE)? [Concomitant]
  7. PARACETAMOL (PARACETAMOL) (PARACETAMOL)? [Concomitant]
  8. IBUPROFEN (IBUPROFEN) (IBUPROFEN)? [Concomitant]
  9. ANAESTHETICS, GENERAL (ANAESTHETICS) (NULL) [Concomitant]

REACTIONS (4)
  - Deafness bilateral [None]
  - Vertigo [None]
  - Post procedural complication [None]
  - Deafness transitory [None]
